FAERS Safety Report 19682315 (Version 1)
Quarter: 2021Q3

REPORT INFORMATION
  Report Type: Spontaneous
  Country: PT (occurrence: PT)
  Receive Date: 20210810
  Receipt Date: 20210810
  Transmission Date: 20211014
  Serious: Yes (Other)
  Sender: FDA-Public Use
  Company Number: PT-MYLANLABS-2021M1049183

PATIENT
  Age: 75 Year
  Sex: Female

DRUGS (3)
  1. RIFAMPICINA [Concomitant]
     Active Substance: RIFAMPIN
     Indication: ENDOCARDITIS
     Dosage: UNK
  2. VANCOMYCIN [Suspect]
     Active Substance: VANCOMYCIN
     Indication: ENDOCARDITIS
     Dosage: UNK
  3. GENTAMICINA                        /00047101/ [Concomitant]
     Active Substance: GENTAMICIN
     Indication: ENDOCARDITIS
     Dosage: UNK

REACTIONS (1)
  - Drug ineffective [Unknown]
